FAERS Safety Report 10163763 (Version 1)
Quarter: 2014Q2

REPORT INFORMATION
  Report Type: Spontaneous
  Country: US (occurrence: US)
  Receive Date: 20140509
  Receipt Date: 20140509
  Transmission Date: 20141212
  Serious: No
  Sender: FDA-Public Use
  Company Number: US-009507513-1405USA000330

PATIENT
  Age: 19 Year
  Sex: Female

DRUGS (2)
  1. NUVARING [Suspect]
     Indication: HAEMORRHAGE
     Dosage: 3 WEEKS IN/ 1 WEEK OUT
     Route: 067
     Dates: start: 20131126
  2. NUVARING [Suspect]
     Indication: HORMONE THERAPY

REACTIONS (2)
  - Premenstrual syndrome [Not Recovered/Not Resolved]
  - Product quality issue [Unknown]
